FAERS Safety Report 17611575 (Version 2)
Quarter: 2020Q2

REPORT INFORMATION
  Report Type: Spontaneous
  Country: US (occurrence: US)
  Receive Date: 20200401
  Receipt Date: 20200611
  Transmission Date: 20200713
  Serious: Yes (Other)
  Sender: FDA-Public Use
  Company Number: US-GENERICUS, INC.-2020GNR00012

PATIENT
  Age: 22 Year
  Sex: Female

DRUGS (2)
  1. TOBRAMYCIN. [Suspect]
     Active Substance: TOBRAMYCIN
     Dosage: 300 MG (1 VIAL) VIA NEBULIZER, 2X/DAY EVERY 12 HOURS FOR 28 DAYS ON 28 DAYS OFF
     Dates: start: 20190430
  2. TOBRAMYCIN. [Suspect]
     Active Substance: TOBRAMYCIN
     Indication: CYSTIC FIBROSIS
     Dosage: 300 MG (1 VIAL), 2X/DAY (EVERY 12 HOURS)
     Dates: start: 20150306

REACTIONS (3)
  - Off label use [Recovered/Resolved]
  - Abortion early [Recovered/Resolved]
  - Exposure during pregnancy [Recovered/Resolved]

NARRATIVE: CASE EVENT DATE: 20150306
